FAERS Safety Report 19712132 (Version 2)
Quarter: 2021Q4

REPORT INFORMATION
  Report Type: Report from Study
  Country: US (occurrence: US)
  Receive Date: 20210816
  Receipt Date: 20211020
  Transmission Date: 20220303
  Serious: Yes (Hospitalization)
  Sender: FDA-Public Use
  Company Number: NVSC2021US184820

PATIENT
  Sex: Male

DRUGS (16)
  1. ENTRESTO [Suspect]
     Active Substance: SACUBITRIL\VALSARTAN
     Indication: Product used for unknown indication
     Dosage: 100 MG, BID
     Route: 048
     Dates: start: 20210909
  2. TYLENOL [Concomitant]
     Active Substance: ACETAMINOPHEN
     Indication: Pain
     Dosage: 1300 MG (EVERY 8 HOURS AS NEEDED)
     Route: 048
  3. VENTOLIN HFA [Concomitant]
     Active Substance: ALBUTEROL SULFATE
     Indication: Wheezing
     Dosage: 2 PUFFS EVERY 6 HOURS (180/90 MCGACT)
     Route: 065
  4. VENTOLIN HFA [Concomitant]
     Active Substance: ALBUTEROL SULFATE
     Indication: Dyspnoea
  5. ELIQUIS [Concomitant]
     Active Substance: APIXABAN
     Indication: Product used for unknown indication
     Dosage: 1 DF, BID
     Route: 065
     Dates: start: 20210820
  6. LIPITOR [Concomitant]
     Active Substance: ATORVASTATIN CALCIUM
     Indication: Product used for unknown indication
     Dosage: 1 DF, QD
     Route: 048
     Dates: start: 20210909
  7. ZYRTEC [Concomitant]
     Active Substance: CETIRIZINE HYDROCHLORIDE
     Indication: Product used for unknown indication
     Dosage: 1 DF, QD
     Route: 048
     Dates: start: 20210427
  8. PLAVIX [Concomitant]
     Active Substance: CLOPIDOGREL BISULFATE
     Indication: Product used for unknown indication
     Dosage: 1 DF, QD
     Route: 048
     Dates: start: 20210821
  9. FARXIGA [Concomitant]
     Active Substance: DAPAGLIFLOZIN PROPANEDIOL
     Indication: Product used for unknown indication
     Dosage: 1 DF, QD
     Route: 048
     Dates: start: 20210909
  10. FLONASE [Concomitant]
     Active Substance: FLUTICASONE PROPIONATE
     Indication: Hypersensitivity
     Dosage: UNK (2 SPRAYS INTO BOTH NOSTRILS AS NEEDED)
     Route: 045
     Dates: start: 20210803
  11. FLONASE [Concomitant]
     Active Substance: FLUTICASONE PROPIONATE
     Indication: Rhinitis
  12. LANTUS [Concomitant]
     Active Substance: INSULIN GLARGINE
     Indication: Product used for unknown indication
     Dosage: 100UNITS/ML(INJECT 55 UNITS INTO SKIN DAILY AFTER BBREAKFAST)
     Route: 058
     Dates: start: 20210810
  13. MAGNESIUM CITRATE [Concomitant]
     Active Substance: MAGNESIUM CITRATE
     Indication: Constipation
     Dosage: UNK(BOTTLE BY MOUTH AS NEEDED)
     Route: 048
  14. TOPROL XL [Concomitant]
     Active Substance: METOPROLOL SUCCINATE
     Indication: Product used for unknown indication
     Dosage: 1 DF, QD
     Route: 048
     Dates: start: 20210821
  15. NITROSTAT [Concomitant]
     Active Substance: NITROGLYCERIN
     Indication: Chest pain
     Dosage: 1 DF (EVERY 5 MINUTES AS NEEDED)
     Route: 060
     Dates: start: 20210810
  16. PROTONIX [Concomitant]
     Active Substance: PANTOPRAZOLE SODIUM
     Indication: Product used for unknown indication
     Dosage: 1 DF, BID
     Route: 048

REACTIONS (1)
  - Malaise [Unknown]
